FAERS Safety Report 21395347 (Version 2)
Quarter: 2022Q4

REPORT INFORMATION
  Report Type: Spontaneous
  Country: US (occurrence: US)
  Receive Date: 20220930
  Receipt Date: 20221111
  Transmission Date: 20230113
  Serious: No
  Sender: FDA-Public Use
  Company Number: US-LEO Pharma-345347

PATIENT
  Age: 31 Year
  Sex: Male

DRUGS (3)
  1. LOTEMAX [Concomitant]
     Active Substance: LOTEPREDNOL ETABONATE
     Indication: Product used for unknown indication
  2. ADBRY [Suspect]
     Active Substance: TRALOKINUMAB-LDRM
     Indication: Dermatitis atopic
     Route: 058
     Dates: start: 20220816
  3. ADBRY [Suspect]
     Active Substance: TRALOKINUMAB-LDRM
     Indication: Dermatitis atopic
     Route: 058
     Dates: start: 20220816

REACTIONS (3)
  - Injury associated with device [Recovered/Resolved]
  - Conjunctivitis [Unknown]
  - Urticaria [Unknown]

NARRATIVE: CASE EVENT DATE: 20220816
